FAERS Safety Report 8044571-5 (Version None)
Quarter: 2012Q1

REPORT INFORMATION
  Report Type: 
  Country: None (occurrence: None)
  Receive Date: 20120113
  Receipt Date: 20120113
  Transmission Date: 20120608
  Serious: Yes (Disabling)
  Sender: FDA-Public Use
  Company Number: None

PATIENT
  Age: 51 Year
  Sex: Male

DRUGS (1)
  1. NALOXONE HCL [Suspect]
     Dosage: 0.4MG
     Route: 042

REACTIONS (2)
  - HYPERHIDROSIS [None]
  - BLOOD PRESSURE DECREASED [None]
